FAERS Safety Report 19418670 (Version 1)
Quarter: 2021Q2

REPORT INFORMATION
  Report Type: Spontaneous
  Country: US (occurrence: US)
  Receive Date: 20210615
  Receipt Date: 20210615
  Transmission Date: 20210717
  Serious: No
  Sender: FDA-Public Use
  Company Number: US-SA-2021SA194148

PATIENT
  Sex: Female

DRUGS (4)
  1. SYMDEKO [Concomitant]
     Active Substance: IVACAFTOR\TEZACAFTOR
     Dosage: UNK
  2. TRIKAFTA [Suspect]
     Active Substance: ELEXACAFTOR\IVACAFTOR\TEZACAFTOR
     Dosage: UNK UNK, BID
  3. TRIKAFTA [Suspect]
     Active Substance: ELEXACAFTOR\IVACAFTOR\TEZACAFTOR
     Dosage: UNK, BID (1 ORANGE TABLET IN THE A.M. AND 1/2 TABLET IN THE P.M.)
  4. DUPIXENT [Suspect]
     Active Substance: DUPILUMAB
     Indication: CYSTIC FIBROSIS LUNG
     Dosage: 200 MG, QOW
     Route: 058

REACTIONS (2)
  - Product use in unapproved indication [Unknown]
  - Feeling abnormal [Unknown]
